FAERS Safety Report 7248978-5 (Version None)
Quarter: 2011Q1

REPORT INFORMATION
  Report Type: 
  Country: None (occurrence: None)
  Receive Date: 20110128
  Receipt Date: 20110117
  Transmission Date: 20110831
  Serious: Yes (Death, Disabling)
  Sender: FDA-Public Use
  Company Number: JP-BRISTOL-MYERS SQUIBB COMPANY-14607667

PATIENT
  Age: 67 Year
  Sex: Male

DRUGS (7)
  1. ONCOVIN [Suspect]
     Indication: ACUTE LYMPHOCYTIC LEUKAEMIA
     Route: 042
     Dates: start: 20090402, end: 20090408
  2. FILGRASTIM [Concomitant]
     Dates: start: 20090405, end: 20090428
  3. PREDNISOLONE [Concomitant]
     Dates: start: 20090402, end: 20090408
  4. THERARUBICIN [Suspect]
     Indication: ACUTE LYMPHOCYTIC LEUKAEMIA
     Dates: start: 20090402, end: 20090408
  5. SPRYCEL [Suspect]
     Indication: ACUTE LYMPHOCYTIC LEUKAEMIA
     Route: 048
     Dates: start: 20090409, end: 20090421
  6. ENDOXAN [Suspect]
     Indication: ACUTE LYMPHOCYTIC LEUKAEMIA
     Dates: start: 20090402, end: 20090408
  7. IMATINIB MESYLATE [Concomitant]
     Dates: start: 20070528, end: 20090322

REACTIONS (5)
  - WHITE BLOOD CELL COUNT DECREASED [None]
  - PLATELET COUNT DECREASED [None]
  - ANAEMIA [None]
  - PLEURAL EFFUSION [None]
  - GASTROINTESTINAL HAEMORRHAGE [None]
